FAERS Safety Report 20800843 (Version 5)
Quarter: 2023Q2

REPORT INFORMATION
  Report Type: Spontaneous
  Country: CA (occurrence: CA)
  Receive Date: 20220509
  Receipt Date: 20230427
  Transmission Date: 20230722
  Serious: Yes (Death, Other)
  Sender: FDA-Public Use
  Company Number: CA-PFIZER INC-202101494725

PATIENT
  Age: 65 Year
  Sex: Female
  Weight: 103.9 kg

DRUGS (7)
  1. INLYTA [Suspect]
     Active Substance: AXITINIB
     Indication: Metastatic renal cell carcinoma
     Dosage: 3 MG, 2X/DAY
     Route: 048
  2. INLYTA [Suspect]
     Active Substance: AXITINIB
     Dosage: 5 MG, 2X/DAY
     Route: 048
     Dates: start: 20211102
  3. INLYTA [Suspect]
     Active Substance: AXITINIB
     Dosage: 5 MG, TWICE A DAY FOR 21 DAYS
     Route: 048
     Dates: start: 20211123
  4. INLYTA [Suspect]
     Active Substance: AXITINIB
     Dosage: 5 MG
  5. KEYTRUDA [Concomitant]
     Active Substance: PEMBROLIZUMAB
     Dosage: UNK
  6. METOCLOPRAMIDE [Concomitant]
     Active Substance: METOCLOPRAMIDE
     Indication: Nausea
     Dosage: 10 MG
     Route: 048
  7. PEMBROLIZUMAB [Concomitant]
     Active Substance: PEMBROLIZUMAB
     Dosage: 200 MG, 1X/DAY
     Route: 042

REACTIONS (5)
  - Neoplasm progression [Fatal]
  - Weight decreased [Unknown]
  - Lung disorder [Unknown]
  - Liver function test increased [Unknown]
  - Cough [Unknown]
